FAERS Safety Report 6397222-X (Version None)
Quarter: 2009Q4

REPORT INFORMATION
  Report Type: 
  Country: None (occurrence: None)
  Receive Date: 20091012
  Receipt Date: 20090928
  Transmission Date: 20100525
  Serious: Yes (Hospitalization)
  Sender: FDA-Public Use
  Company Number: FR-ELI_LILLY_AND_COMPANY-FR200909006353

PATIENT
  Sex: Female

DRUGS (1)
  1. FORTEO [Suspect]
     Indication: OSTEOPOROSIS
     Dosage: 20 UG, DAILY (1/D)
     Route: 065
     Dates: start: 20090824

REACTIONS (9)
  - BACK PAIN [None]
  - BLADDER DILATATION [None]
  - BLADDER PAIN [None]
  - BLOOD PRESSURE INCREASED [None]
  - DYSURIA [None]
  - PAIN IN EXTREMITY [None]
  - SCIATICA [None]
  - THIRST [None]
  - VISUAL IMPAIRMENT [None]
